FAERS Safety Report 6868609-3 (Version None)
Quarter: 2010Q3

REPORT INFORMATION
  Report Type: 
  Country: None (occurrence: None)
  Receive Date: 20100721
  Receipt Date: 20100721
  Transmission Date: 20110219
  Serious: Yes (Other)
  Sender: FDA-Public Use
  Company Number: None

PATIENT
  Sex: Female
  Weight: 93.8946 kg

DRUGS (3)
  1. LENALIDOMIDE 10 MG CELGENE [Suspect]
     Indication: MYELOFIBROSIS
     Dosage: 10 MG Q 3 D PO
     Route: 048
  2. DEXAMETHASONE [Concomitant]
  3. ASPIRIN [Concomitant]

REACTIONS (2)
  - ABDOMINAL PAIN [None]
  - SPLENOMEGALY [None]
